FAERS Safety Report 4882741-5 (Version None)
Quarter: 2006Q1

REPORT INFORMATION
  Report Type: 
  Country: None (occurrence: None)
  Receive Date: 20060117
  Receipt Date: 20050317
  Transmission Date: 20060701
  Serious: Yes (Other)
  Sender: FDA-Public Use
  Company Number: US-MERCK-0503USA03477

PATIENT
  Age: 55 Year
  Sex: Female
  Weight: 77 kg

DRUGS (32)
  1. VIOXX [Suspect]
     Indication: ARTHRITIS
     Route: 048
     Dates: start: 20021114, end: 20030829
  2. SOMA [Concomitant]
     Route: 065
  3. OXYCODONE [Concomitant]
     Route: 065
  4. BACLOFEN [Concomitant]
     Route: 065
  5. DIFLUCAN [Concomitant]
     Route: 065
  6. VICODIN [Concomitant]
     Route: 065
  7. ULTRAM [Concomitant]
     Route: 065
  8. AMBIEN [Concomitant]
     Route: 065
  9. KEFLEX [Concomitant]
     Route: 065
  10. TOPROL-XL [Concomitant]
     Route: 065
  11. LOTREL [Concomitant]
     Route: 065
  12. BENICAR [Concomitant]
     Route: 065
  13. ASPIRIN [Concomitant]
     Route: 065
  14. NITROQUICK [Concomitant]
     Route: 065
  15. FLEXERIL [Concomitant]
     Route: 048
  16. FLEXEN (NAPROXEN) [Concomitant]
     Route: 065
  17. COMPAZINE [Concomitant]
     Route: 065
  18. TEQUIN [Concomitant]
     Route: 065
  19. DURAGESIC-100 [Concomitant]
     Route: 065
  20. PLAVIX [Concomitant]
     Route: 065
  21. LEVAQUIN [Concomitant]
     Route: 065
  22. TEMAZEPAM [Concomitant]
     Route: 065
  23. PREDNISONE [Concomitant]
     Route: 065
  24. PLETAL [Concomitant]
     Route: 065
  25. ADVAIR DISKUS 250/50 [Concomitant]
     Route: 065
  26. ZOCOR [Concomitant]
     Route: 048
  27. COMBIVENT [Concomitant]
     Route: 065
  28. DEMEROL [Concomitant]
     Route: 065
  29. METHADONE HYDROCHLORIDE [Concomitant]
     Route: 065
  30. REGLAN [Concomitant]
     Route: 065
  31. DARVOCET-N 50 [Concomitant]
     Route: 065
  32. VALIUM [Concomitant]
     Route: 065

REACTIONS (20)
  - ABDOMINAL PAIN [None]
  - ABDOMINAL WALL ABSCESS [None]
  - ABSCESS DRAINAGE [None]
  - ARRHYTHMIA [None]
  - ASTHMA [None]
  - CATHETER REMOVAL [None]
  - CEREBROVASCULAR ACCIDENT [None]
  - CHRONIC OBSTRUCTIVE PULMONARY DISEASE [None]
  - GASTROOESOPHAGEAL REFLUX DISEASE [None]
  - HYPERTENSION [None]
  - INTERVERTEBRAL DISC OPERATION [None]
  - MEDICAL DEVICE IMPLANTATION [None]
  - NAUSEA [None]
  - NECK PAIN [None]
  - PAIN [None]
  - PNEUMONIA [None]
  - SURGERY [None]
  - ULCER [None]
  - URINARY RETENTION [None]
  - VOMITING [None]
